FAERS Safety Report 5808859-8 (Version None)
Quarter: 2008Q3

REPORT INFORMATION
  Report Type: 
  Country: None (occurrence: None)
  Receive Date: 20080714
  Receipt Date: 20080709
  Transmission Date: 20090109
  Serious: Yes (Other)
  Sender: FDA-Public Use
  Company Number: JP-AVENTIS-200811965JP

PATIENT
  Sex: Female

DRUGS (3)
  1. LANTUS [Suspect]
     Dosage: DOSE: 14 UNITS
     Route: 058
     Dates: end: 20080618
  2. QUICK ACTING INSULIN [Concomitant]
     Dosage: DOSE: 30UNITS/DAY(10-10-10-0)
     Route: 058
     Dates: end: 20080618
  3. QUICK ACTING INSULIN [Concomitant]
     Dosage: DOSE: 10-10 UNITS
     Dates: start: 20080619

REACTIONS (3)
  - CAESAREAN SECTION [None]
  - DRUG EXPOSURE DURING PREGNANCY [None]
  - HYPOGLYCAEMIA [None]
